FAERS Safety Report 8226048-7 (Version None)
Quarter: 2012Q1

REPORT INFORMATION
  Report Type: 
  Country: None (occurrence: None)
  Receive Date: 20120321
  Receipt Date: 20111014
  Transmission Date: 20120608
  Serious: Yes (Other)
  Sender: FDA-Public Use
  Company Number: GB-GILEAD-E2B_00001518

PATIENT
  Age: 40 Year
  Sex: Male

DRUGS (3)
  1. ATRIPLA [Suspect]
     Indication: ASYMPTOMATIC HIV INFECTION
     Dosage: UNK
     Route: 048
  2. COMBIVIR [Concomitant]
  3. NEVIRAPINE [Concomitant]

REACTIONS (1)
  - CONFUSIONAL STATE [None]
